FAERS Safety Report 16738151 (Version 1)
Quarter: 2019Q3

REPORT INFORMATION
  Report Type: Spontaneous
  Country: BE (occurrence: BE)
  Receive Date: 20190824
  Receipt Date: 20190824
  Transmission Date: 20191005
  Serious: Yes (Hospitalization)
  Sender: FDA-Public Use
  Company Number: PHHY2019BE193613

PATIENT
  Age: 9 Year
  Sex: Female
  Weight: 32 kg

DRUGS (9)
  1. PERDOLAN [Suspect]
     Active Substance: ACETAMINOPHEN
     Indication: ANALGESIC THERAPY
     Dosage: 2000 MG, QD
     Route: 048
     Dates: start: 20190602
  2. FLAGYL [Suspect]
     Active Substance: METRONIDAZOLE\METRONIDAZOLE HYDROCHLORIDE
     Indication: ANTIBIOTIC PROPHYLAXIS
     Dosage: 1500 MG, QD
     Route: 042
     Dates: start: 20190602
  3. PLASMALYTE GLUCOS [Suspect]
     Active Substance: DEXTROSE MONOHYDRATE\MAGNESIUM CHLORIDE\POTASSIUM CHLORIDE\SODIUM ACETATE\SODIUM CHLORIDE\SODIUM GLUCONATE
     Indication: FASTING
     Dosage: 1500 ML, QD
     Route: 042
     Dates: start: 20190603, end: 20190604
  4. CEFAZOLIN [Suspect]
     Active Substance: CEFAZOLIN
     Dosage: 3000 MG, QD
     Route: 042
     Dates: start: 20190604
  5. LITICAN [Suspect]
     Active Substance: ALIZAPRIDE HYDROCHLORIDE
     Indication: ANTIEMETIC SUPPORTIVE CARE
     Dosage: 90 MG, QD
     Route: 042
     Dates: start: 20190602
  6. LITICAN [Suspect]
     Active Substance: ALIZAPRIDE HYDROCHLORIDE
     Dosage: 90 MG, QD
     Route: 042
     Dates: start: 20190604
  7. FLAGYL [Suspect]
     Active Substance: METRONIDAZOLE\METRONIDAZOLE HYDROCHLORIDE
     Dosage: 1500 MG, QD
     Route: 042
     Dates: start: 20190604
  8. CEFAZOLIN [Suspect]
     Active Substance: CEFAZOLIN
     Indication: ANTIBIOTIC PROPHYLAXIS
     Dosage: 3000 MG, QD
     Route: 042
     Dates: start: 20190602
  9. PERDOLAN [Suspect]
     Active Substance: ACETAMINOPHEN
     Dosage: 2000 MG, QD
     Route: 048
     Dates: start: 20190604

REACTIONS (3)
  - Administration site extravasation [Recovered/Resolved]
  - Burns second degree [Recovered/Resolved]
  - Skin exfoliation [Recovered/Resolved]

NARRATIVE: CASE EVENT DATE: 20190603
